FAERS Safety Report 5812503-3 (Version None)
Quarter: 2008Q3

REPORT INFORMATION
  Report Type: 
  Country: None (occurrence: None)
  Receive Date: 20080715
  Receipt Date: 20080715
  Transmission Date: 20090109
  Serious: Yes (Other)
  Sender: FDA-Public Use
  Company Number: None

PATIENT
  Age: 50 Year
  Sex: Male
  Weight: 122 kg

DRUGS (5)
  1. DURAGESIC-75 [Suspect]
     Indication: CRYOGLOBULINAEMIA
     Dosage: 75, THEN 100 UG/HR Q48 TRANSDERMAL
     Route: 062
     Dates: start: 20030224, end: 20061022
  2. DURAGESIC-75 [Suspect]
     Indication: NERVOUS SYSTEM DISORDER
     Dosage: 75, THEN 100 UG/HR Q48 TRANSDERMAL
     Route: 062
     Dates: start: 20030224, end: 20061022
  3. FENTANYL-100 [Suspect]
     Indication: CRYOGLOBULINAEMIA
     Dosage: 100 UG/HR Q48 TRANSDERMAL
     Route: 062
     Dates: start: 20061023, end: 20080714
  4. FENTANYL-100 [Suspect]
     Indication: NEUROPATHY PERIPHERAL
     Dosage: 100 UG/HR Q48 TRANSDERMAL
     Route: 062
     Dates: start: 20061023, end: 20080714
  5. IBUPROFEN [Concomitant]

REACTIONS (1)
  - PHARMACEUTICAL PRODUCT COMPLAINT [None]
